FAERS Safety Report 10910002 (Version 1)
Quarter: 2015Q1

REPORT INFORMATION
  Report Type: Spontaneous
  Country: US (occurrence: US)
  Receive Date: 20150312
  Receipt Date: 20150312
  Transmission Date: 20150721
  Serious: No
  Sender: FDA-Public Use
  Company Number: US-SA-2014SA088013

PATIENT
  Age: 72 Year
  Sex: Female

DRUGS (1)
  1. NASACORT ALLERGY 24HR [Suspect]
     Active Substance: TRIAMCINOLONE ACETONIDE
     Indication: HYPERSENSITIVITY
     Dosage: TAKEN FROM: FEW WEEKS AGO.?DOSE: 2 SPRAYS/NARE?PRODUCT STOP: ONE WEEK AGO.
     Route: 065
     Dates: start: 201406, end: 201406

REACTIONS (5)
  - Drug dose omission [Unknown]
  - Pharyngitis [Unknown]
  - Dysphonia [Unknown]
  - Bronchitis [Unknown]
  - Throat irritation [Unknown]
